FAERS Safety Report 5472192-7 (Version None)
Quarter: 2007Q3

REPORT INFORMATION
  Report Type: 
  Country: None (occurrence: None)
  Receive Date: 20070926
  Receipt Date: 20070917
  Transmission Date: 20080115
  Serious: Yes (Other)
  Sender: FDA-Public Use
  Company Number: GXKR2007US08034

PATIENT
  Age: 57 Year
  Sex: Female

DRUGS (5)
  1. DOXORUBICIN HCL [Suspect]
     Indication: B-CELL LYMPHOMA
     Dosage: 8 COURSES
  2. VINCRISTINE [Suspect]
     Indication: B-CELL LYMPHOMA
     Dosage: 8 COURSES
  3. PREDNISONE [Suspect]
     Indication: B-CELL LYMPHOMA
     Dosage: COURSE
  4. CYCLOPHOSPHAMIDE [Suspect]
     Indication: B-CELL LYMPHOMA
     Dosage: 8 COURSES
  5. RITUXAN [Suspect]
     Indication: B-CELL LYMPHOMA
     Dosage: 8 COURSES

REACTIONS (2)
  - SARCOIDOSIS [None]
  - SPLEEN DISORDER [None]
